FAERS Safety Report 7989252-9 (Version None)
Quarter: 2011Q4

REPORT INFORMATION
  Report Type: 
  Country: None (occurrence: None)
  Receive Date: 20111219
  Receipt Date: 20111206
  Transmission Date: 20120403
  Serious: Yes (Death, Other)
  Sender: FDA-Public Use
  Company Number: DE-CELGENEUS-062-20785-10090943

PATIENT

DRUGS (1)
  1. THALIDOMIDE [Suspect]
     Indication: MULTIPLE MYELOMA
     Dosage: 100, 200, 400 MG
     Route: 048

REACTIONS (31)
  - DEATH [None]
  - SICK SINUS SYNDROME [None]
  - ATRIOVENTRICULAR BLOCK FIRST DEGREE [None]
  - CONDITION AGGRAVATED [None]
  - DIZZINESS [None]
  - RENAL FAILURE [None]
  - SINUS BRADYCARDIA [None]
  - ANAEMIA [None]
  - ADAMS-STOKES SYNDROME [None]
  - RETINAL VEIN THROMBOSIS [None]
  - ARRHYTHMIA [None]
  - PULMONARY EMBOLISM [None]
  - CARDIO-RESPIRATORY ARREST [None]
  - PNEUMONIA [None]
  - FEBRILE NEUTROPENIA [None]
  - CONSTIPATION [None]
  - RASH [None]
  - FATIGUE [None]
  - MULTIPLE MYELOMA [None]
  - TACHYCARDIA [None]
  - NAUSEA [None]
  - THROMBOPHLEBITIS [None]
  - SYNCOPE [None]
  - BACK PAIN [None]
  - NO THERAPEUTIC RESPONSE [None]
  - ASTHENIA [None]
  - NEUTROPENIA [None]
  - BRADYCARDIA [None]
  - DEEP VEIN THROMBOSIS [None]
  - PALPITATIONS [None]
  - NEUROPATHY PERIPHERAL [None]
